FAERS Safety Report 15170411 (Version 1)
Quarter: 2018Q3

REPORT INFORMATION
  Report Type: Spontaneous
  Country: ES (occurrence: ES)
  Receive Date: 20180720
  Receipt Date: 20180720
  Transmission Date: 20181010
  Serious: Yes (Other)
  Sender: FDA-Public Use
  Company Number: ES-CONCORDIA PHARMACEUTICALS INC.-E2B_00014332

PATIENT
  Age: 66 Year
  Sex: Male

DRUGS (3)
  1. PREDNISOLONE. [Suspect]
     Active Substance: PREDNISOLONE
     Dosage: 10 MG, QD
     Route: 065
  2. PREDNISOLONE. [Suspect]
     Active Substance: PREDNISOLONE
     Dosage: 5 UNK
     Route: 065
  3. JEVTANA [Suspect]
     Active Substance: CABAZITAXEL
     Dosage: UNK, Q3W
     Route: 065
     Dates: start: 20160331, end: 20160331

REACTIONS (3)
  - Bone pain [Unknown]
  - Cushingoid [Unknown]
  - Lacrimation increased [Unknown]
